FAERS Safety Report 9192252 (Version 3)
Quarter: 2013Q3

REPORT INFORMATION
  Report Type: Report from Study
  Country: CA (occurrence: CA)
  Receive Date: 20130327
  Receipt Date: 20130923
  Transmission Date: 20140515
  Serious: Yes (Other)
  Sender: FDA-Public Use
  Company Number: CA-JNJFOC-20130314482

PATIENT
  Age: 68 Year
  Sex: Male
  Weight: 70 kg

DRUGS (3)
  1. REMICADE [Suspect]
     Indication: RHEUMATOID ARTHRITIS
     Dosage: 28 INFUSIONS
     Route: 042
     Dates: start: 20071122, end: 20121217
  2. PREDNISONE [Suspect]
     Indication: PRODUCT USED FOR UNKNOWN INDICATION
     Dosage: ^ODS^
     Route: 048
  3. ARAVA [Concomitant]
     Route: 065

REACTIONS (1)
  - Laryngeal cancer stage 0 [Recovering/Resolving]
